FAERS Safety Report 20298350 (Version 1)
Quarter: 2022Q1

REPORT INFORMATION
  Report Type: Report from Study
  Country: DE (occurrence: DE)
  Receive Date: 20220105
  Receipt Date: 20220105
  Transmission Date: 20220423
  Serious: Yes (Other)
  Sender: FDA-Public Use
  Company Number: DE-CELGENE-DEU-20211206861

PATIENT
  Age: 74 Year
  Sex: Female
  Weight: 48 kg

DRUGS (6)
  1. REVLIMID [Suspect]
     Active Substance: LENALIDOMIDE
     Indication: Plasma cell myeloma
     Route: 048
     Dates: start: 20200528
  2. REVLIMID [Suspect]
     Active Substance: LENALIDOMIDE
     Dosage: 7.5 MILLIGRAM
     Route: 048
     Dates: start: 20201119, end: 20210727
  3. DARATUMUMAB [Suspect]
     Active Substance: DARATUMUMAB
     Indication: Plasma cell myeloma
     Dosage: 768 MILLIGRAM
     Route: 065
     Dates: start: 20200528
  4. DARATUMUMAB [Suspect]
     Active Substance: DARATUMUMAB
     Dosage: 784 MILLIGRAM
     Route: 065
     Dates: start: 20201112
  5. ACYCLOVIR [Concomitant]
     Active Substance: ACYCLOVIR
     Indication: Product used for unknown indication
     Dosage: 400 MILLIGRAM
     Route: 048
     Dates: start: 20200528
  6. DEXAMETHASONE [Concomitant]
     Active Substance: DEXAMETHASONE
     Indication: Product used for unknown indication
     Dosage: 20 MILLIGRAM
     Route: 065
     Dates: start: 20200528, end: 20201120

REACTIONS (1)
  - Toxic neuropathy [Not Recovered/Not Resolved]

NARRATIVE: CASE EVENT DATE: 20201120
